FAERS Safety Report 9908561 (Version 1)
Quarter: 2014Q1

REPORT INFORMATION
  Report Type: Spontaneous
  Country: TR (occurrence: TR)
  Receive Date: 20140219
  Receipt Date: 20140219
  Transmission Date: 20141002
  Serious: Yes (Hospitalization)
  Sender: FDA-Public Use
  Company Number: TR-BAYER-2014-021744

PATIENT
  Sex: Female
  Weight: 50 kg

DRUGS (1)
  1. CORASPIN [Suspect]
     Dosage: 100 MG, QD

REACTIONS (3)
  - Haemoptysis [None]
  - Blister [None]
  - Dyspnoea [None]
